FAERS Safety Report 23870985 (Version 2)
Quarter: 2024Q2

REPORT INFORMATION
  Report Type: Spontaneous
  Country: US (occurrence: US)
  Receive Date: 20240518
  Receipt Date: 20240618
  Transmission Date: 20240715
  Serious: Yes (Hospitalization)
  Sender: FDA-Public Use
  Company Number: US-JNJFOC-20240542628

PATIENT
  Age: 79 Year
  Sex: Female
  Weight: 69.462 kg

DRUGS (1)
  1. DARZALEX [Suspect]
     Active Substance: DARATUMUMAB
     Indication: Plasma cell myeloma
     Dosage: 28 DAY CYCLE
     Route: 042
     Dates: start: 20220307

REACTIONS (2)
  - Hospitalisation [Unknown]
  - Product dose omission issue [Unknown]
